FAERS Safety Report 9250838 (Version 1)
Quarter: 2013Q2

REPORT INFORMATION
  Report Type: Spontaneous
  Country: CH (occurrence: CH)
  Receive Date: 20130424
  Receipt Date: 20130424
  Transmission Date: 20140414
  Serious: Yes (Hospitalization)
  Sender: FDA-Public Use
  Company Number: PHHY2013CH037800

PATIENT
  Age: 45 Year
  Sex: Female
  Weight: 67 kg

DRUGS (8)
  1. GILENYA [Suspect]
     Indication: MULTIPLE SCLEROSIS
     Dosage: 0.5 MG, QD
     Route: 048
     Dates: start: 20130306, end: 20130321
  2. CITALOPRAM ECOSOL [Suspect]
     Dosage: 20 MG, QD
     Dates: start: 201204
  3. ORFIRIL [Suspect]
     Indication: EPILEPSY
     Dosage: 1500 MG, UNK
     Dates: start: 201203
  4. LAMICTAL [Suspect]
     Indication: EPILEPSY
     Dosage: 200 MG, UNK
     Dates: start: 201104
  5. SEROQUEL [Suspect]
     Dosage: 25 MG, QD
     Dates: start: 201108
  6. ESOMEP HP [Concomitant]
     Dosage: 40 MG, QD
     Route: 048
     Dates: start: 2011
  7. TAMSULOSIN MEPHA [Concomitant]
     Indication: BLADDER DYSFUNCTION
     Dosage: UNK, QD
     Route: 048
     Dates: start: 201206
  8. CALCIMAGON D3 [Concomitant]
     Dosage: 1 DF, QD
     Route: 048

REACTIONS (7)
  - Petit mal epilepsy [Recovered/Resolved]
  - Fatigue [Unknown]
  - Depressed level of consciousness [Recovering/Resolving]
  - Mobility decreased [Unknown]
  - Hypophagia [Unknown]
  - Aphasia [Unknown]
  - Electroencephalogram abnormal [Recovered/Resolved]
